FAERS Safety Report 19189824 (Version 1)
Quarter: 2021Q2

REPORT INFORMATION
  Report Type: Spontaneous
  Country: US (occurrence: US)
  Receive Date: 20210428
  Receipt Date: 20210428
  Transmission Date: 20210717
  Serious: No
  Sender: FDA-Public Use
  Company Number: None

PATIENT
  Sex: Male

DRUGS (2)
  1. DALFAMPRIDINE ER 10MG AUROBINDO PHARMA [Suspect]
     Active Substance: DALFAMPRIDINE
     Indication: MULTIPLE SCLEROSIS
     Route: 048
     Dates: start: 20201109
  2. DALFAMPRIDINE ER 10MG AUROBINDO PHARMA [Suspect]
     Active Substance: DALFAMPRIDINE
     Indication: OSTEOARTHRITIS
     Route: 048
     Dates: start: 20201109

REACTIONS (1)
  - Adverse reaction [None]
